FAERS Safety Report 7417639-1 (Version None)
Quarter: 2011Q2

REPORT INFORMATION
  Report Type: 
  Country: None (occurrence: None)
  Receive Date: 20110415
  Receipt Date: 20110405
  Transmission Date: 20111010
  Serious: Yes (Hospitalization)
  Sender: FDA-Public Use
  Company Number: PHHY2011PA28002

PATIENT
  Age: 66 Year
  Sex: Female

DRUGS (2)
  1. ACLASTA [Suspect]
     Indication: OSTEOPOROSIS
     Dosage: 5 MG
     Route: 042
     Dates: start: 20100104
  2. OMEPRAZOLE [Concomitant]
     Dosage: 20 MG, BID
     Route: 046

REACTIONS (7)
  - WEIGHT DECREASED [None]
  - INSOMNIA [None]
  - GASTRITIS [None]
  - CHILLS [None]
  - BONE PAIN [None]
  - HELICOBACTER INFECTION [None]
  - ARTHRITIS [None]
